FAERS Safety Report 21602297 (Version 2)
Quarter: 2022Q4

REPORT INFORMATION
  Report Type: Spontaneous
  Country: US (occurrence: US)
  Receive Date: 20221116
  Receipt Date: 20221118
  Transmission Date: 20230113
  Serious: Yes (Other)
  Sender: FDA-Public Use
  Company Number: US-PFIZER INC-202201299641

PATIENT
  Sex: Female

DRUGS (1)
  1. PAXLOVID [Suspect]
     Active Substance: NIRMATRELVIR\RITONAVIR
     Indication: COVID-19 treatment
     Dosage: 3 DF, 2X/DAY (THREE TABLETS BY MOUTH TWICE PER DAY FOR 5 DAYS)
     Route: 048
     Dates: start: 20221113

REACTIONS (14)
  - Dyskinesia [Unknown]
  - Fall [Unknown]
  - Syncope [Unknown]
  - Gait inability [Unknown]
  - Diarrhoea [Recovered/Resolved]
  - Cold sweat [Unknown]
  - Feeling cold [Unknown]
  - Dysgeusia [Unknown]
  - Vision blurred [Unknown]
  - Vomiting [Recovered/Resolved]
  - Nausea [Unknown]
  - Mobility decreased [Unknown]
  - Fatigue [Unknown]
  - Dizziness postural [Unknown]

NARRATIVE: CASE EVENT DATE: 20221114
